FAERS Safety Report 6015235-4 (Version None)
Quarter: 2008Q4

REPORT INFORMATION
  Report Type: 
  Country: None (occurrence: None)
  Receive Date: 20081219
  Receipt Date: 20081219
  Transmission Date: 20090506
  Serious: Yes (Other)
  Sender: FDA-Public Use
  Company Number: None

PATIENT
  Age: 32 Year
  Sex: Male
  Weight: 90.7194 kg

DRUGS (1)
  1. BENZTROPINE MESYLATE [Suspect]
     Dosage: .5MG BID PO
     Route: 048
     Dates: start: 20081210, end: 20081212

REACTIONS (1)
  - HYPOAESTHESIA [None]
